FAERS Safety Report 9557761 (Version 1)
Quarter: 2013Q3

REPORT INFORMATION
  Report Type: Spontaneous
  Country: US (occurrence: None)
  Receive Date: 20130724
  Receipt Date: 20130724
  Transmission Date: 20140515
  Serious: No
  Sender: FDA-Public Use
  Company Number: PHEH2013US005153

PATIENT
  Age: 56 Year
  Sex: Male
  Weight: 113.4 kg

DRUGS (8)
  1. GILENYA (FINGOLIMOD) CAPSULE, 0.5MG [Suspect]
     Indication: MULTIPLE SCLEROSIS
     Route: 048
     Dates: start: 20130211
  2. LIPITOR (ATORVASTATIN CALCIUM) [Concomitant]
  3. LYRICA (PREGABALIN) [Concomitant]
  4. ACYCLOVIR (ACICLOVIR) (ACICLOVIR) [Concomitant]
  5. GLIPIZIDE (GLIPIZIDE) [Concomitant]
  6. DIAZEPAM (DIAZEPAM) [Concomitant]
  7. BENAZEPRIL /HCTZ (BENAZEPRIL HYDROCHLORIDE, HYDROCHLOROTHIAZIDE) [Concomitant]
  8. HYDROXYZINE HCL (HYDROXYZINE HYDROCHLORIDE) [Concomitant]

REACTIONS (2)
  - Fatigue [None]
  - Hypoaesthesia [None]
